FAERS Safety Report 23074661 (Version 1)
Quarter: 2023Q4

REPORT INFORMATION
  Report Type: Report from Study
  Country: US (occurrence: US)
  Receive Date: 20231017
  Receipt Date: 20231017
  Transmission Date: 20240109
  Serious: No
  Sender: FDA-Public Use
  Company Number: US-002147023-NVSC2023US223027

PATIENT
  Sex: Female

DRUGS (1)
  1. COSENTYX [Suspect]
     Active Substance: SECUKINUMAB
     Indication: Psoriasis
     Dosage: 300 MG
     Route: 065

REACTIONS (6)
  - Psoriasis [Unknown]
  - Condition aggravated [Unknown]
  - Pruritus [Unknown]
  - Arthralgia [Unknown]
  - Anxiety [Unknown]
  - Product use issue [Unknown]
